FAERS Safety Report 23498340 (Version 3)
Quarter: 2024Q1

REPORT INFORMATION
  Report Type: Report from Study
  Country: US (occurrence: US)
  Receive Date: 20240207
  Receipt Date: 20240320
  Transmission Date: 20240410
  Serious: Yes (Death)
  Sender: FDA-Public Use
  Company Number: US-JNJFOC-20240209555

PATIENT
  Age: 54 Year
  Sex: Male
  Weight: 95.34 kg

DRUGS (9)
  1. SPRAVATO [Suspect]
     Active Substance: ESKETAMINE
     Indication: Depression
     Dosage: 56 MG, 1 TOTAL DOSES
     Dates: start: 20220629, end: 20220629
  2. SPRAVATO [Suspect]
     Active Substance: ESKETAMINE
     Dosage: 84 MG, 48 TOTAL DOSES
     Dates: start: 20220701, end: 20240116
  3. CLONAZEPAM [Concomitant]
     Active Substance: CLONAZEPAM
     Indication: Anxiety
     Dosage: STARTED USING PRIOR TO 31-AUG-2021
     Route: 065
  4. LEXAPRO [Concomitant]
     Active Substance: ESCITALOPRAM OXALATE
  5. LITHIUM [Concomitant]
     Active Substance: LITHIUM
  6. NALTREXONE [Concomitant]
     Active Substance: NALTREXONE
  7. VILAZODONE [Concomitant]
     Active Substance: VILAZODONE
     Indication: Depression
     Route: 065
     Dates: start: 20231211, end: 20240129
  8. QUETIAPINE [Concomitant]
     Active Substance: QUETIAPINE
     Indication: Anxiety
     Route: 065
     Dates: start: 20231218, end: 20240129
  9. QUETIAPINE [Concomitant]
     Active Substance: QUETIAPINE
     Indication: Insomnia

REACTIONS (1)
  - Completed suicide [Fatal]

NARRATIVE: CASE EVENT DATE: 20240129
